FAERS Safety Report 14372150 (Version 8)
Quarter: 2019Q2

REPORT INFORMATION
  Report Type: Report from Study
  Country: US (occurrence: CA)
  Receive Date: 20180110
  Receipt Date: 20190510
  Transmission Date: 20190711
  Serious: Yes (Hospitalization, Other)
  Sender: FDA-Public Use
  Company Number: US-SUNOVION-2017SUN005554

PATIENT
  Age: 64 Year
  Sex: Female

DRUGS (30)
  1. XOLAIR [Suspect]
     Active Substance: OMALIZUMAB
     Indication: ASTHMA
     Dosage: 375 MG, BIW (REGIMEN #1)
     Route: 058
     Dates: start: 20161209
  2. XOLAIR [Suspect]
     Active Substance: OMALIZUMAB
     Dosage: UNK, (REGIMEN #2)
     Route: 058
     Dates: start: 20170612
  3. MONTELUKAST [Concomitant]
     Active Substance: MONTELUKAST SODIUM
     Indication: PRODUCT USED FOR UNKNOWN INDICATION
     Dosage: 1 ?G, QD
     Dates: start: 20160708
  4. DEXILANT [Concomitant]
     Active Substance: DEXLANSOPRAZOLE
     Dosage: 1 DF, QID
  5. XOLAIR [Suspect]
     Active Substance: OMALIZUMAB
     Dosage: UNK, (REGIMEN #4)
     Route: 058
     Dates: start: 20170711
  6. XOLAIR [Suspect]
     Active Substance: OMALIZUMAB
     Dosage: 375 MG BIW
     Dates: start: 20190416
  7. TIMOLOL. [Concomitant]
     Active Substance: TIMOLOL
     Indication: PRODUCT USED FOR UNKNOWN INDICATION
     Dosage: UNK, UNK BID (REGIMEN #1)
     Route: 047
  8. GLYCOPYRROLATE. [Suspect]
     Active Substance: GLYCOPYRROLATE
     Indication: PRODUCT USED FOR UNKNOWN INDICATION
     Dosage: 1 DF (50 UG), QD (REGIMEN #1)
     Route: 055
     Dates: start: 20150713
  9. XOLAIR [Suspect]
     Active Substance: OMALIZUMAB
     Dosage: UNK, (REGIMEN #3)
     Route: 058
     Dates: start: 20170626
  10. VENLAFAXINE [Concomitant]
     Active Substance: VENLAFAXINE HYDROCHLORIDE
     Indication: PRODUCT USED FOR UNKNOWN INDICATION
     Dosage: 1 DF, QID
     Route: 065
  11. SYMBICORT [Concomitant]
     Active Substance: BUDESONIDE\FORMOTEROL FUMARATE DIHYDRATE
     Dosage: 2 DF, QID
     Route: 065
  12. XOLAIR [Suspect]
     Active Substance: OMALIZUMAB
     Dosage: UNK, (REGIMEN #8)
     Route: 058
     Dates: start: 20171002
  13. XOLAIR [Suspect]
     Active Substance: OMALIZUMAB
     Dosage: UNK, UNK (REGIMEN #10)
     Route: 058
     Dates: start: 20180206
  14. XOLAIR [Suspect]
     Active Substance: OMALIZUMAB
     Dosage: 375 MG, BIW
     Route: 058
     Dates: start: 20190208
  15. XOLAIR [Suspect]
     Active Substance: OMALIZUMAB
     Dosage: 375 MG BIW
     Dates: start: 20190502
  16. VALSARTAN SANDOZ [Concomitant]
     Active Substance: VALSARTAN
     Indication: PRODUCT USED FOR UNKNOWN INDICATION
     Dosage: 1 DF (40 MG), QID
     Route: 065
  17. XOLAIR [Suspect]
     Active Substance: OMALIZUMAB
     Dosage: 375 MG, BIW (REGIMEN #11)
     Route: 058
     Dates: start: 20180904
  18. XOLAIR [Suspect]
     Active Substance: OMALIZUMAB
     Dosage: 375 MG, BIW
     Route: 058
     Dates: start: 20181001
  19. XOLAIR [Suspect]
     Active Substance: OMALIZUMAB
     Dosage: UNK
     Route: 058
     Dates: start: 201902
  20. SYMBICORT [Concomitant]
     Active Substance: BUDESONIDE\FORMOTEROL FUMARATE DIHYDRATE
     Dosage: 2 PUFFS (200/6 MCG), TID
     Dates: start: 20140713
  21. PREDNISONE. [Concomitant]
     Active Substance: PREDNISONE
     Dosage: 1 DF, QD
     Dates: start: 20160708
  22. XOLAIR [Suspect]
     Active Substance: OMALIZUMAB
     Dosage: UNK, (REGIMEN #5)
     Route: 058
     Dates: start: 2017
  23. XOLAIR [Suspect]
     Active Substance: OMALIZUMAB
     Dosage: UNK, (REGIMEN #6)
     Route: 058
     Dates: start: 20170906
  24. XOLAIR [Suspect]
     Active Substance: OMALIZUMAB
     Dosage: UNK, (REGIMEN #9)
     Route: 058
     Dates: start: 20171227
  25. SPIRIVA [Suspect]
     Active Substance: TIOTROPIUM BROMIDE MONOHYDRATE
     Indication: PRODUCT USED FOR UNKNOWN INDICATION
     Dosage: UNK, REGIMEN #1
     Route: 055
     Dates: end: 20170515
  26. VENTOLIN [Concomitant]
     Active Substance: ALBUTEROL SULFATE
     Dosage: 2 ML, UNK
     Dates: start: 20160708
  27. MAR ATENOLOL [Concomitant]
     Dosage: 1 MG, UNK
  28. COUMADIN [Concomitant]
     Active Substance: WARFARIN SODIUM
     Dosage: 7.5 MG, QD
  29. XOLAIR [Suspect]
     Active Substance: OMALIZUMAB
     Dosage: UNK, (REGIMEN #7)
     Route: 058
     Dates: start: 20170918
  30. LOMOTIL [Concomitant]
     Active Substance: ATROPINE SULFATE\DIPHENOXYLATE HYDROCHLORIDE
     Dosage: 2 DF, QID

REACTIONS (18)
  - Frustration tolerance decreased [Unknown]
  - Chronic obstructive pulmonary disease [Not Recovered/Not Resolved]
  - Total lung capacity increased [Not Recovered/Not Resolved]
  - Blood pressure systolic increased [Unknown]
  - Drug ineffective [Unknown]
  - Heart rate increased [Unknown]
  - Pulmonary thrombosis [Not Recovered/Not Resolved]
  - Cough [Unknown]
  - Dyspnoea [Not Recovered/Not Resolved]
  - Forced expiratory volume decreased [Not Recovered/Not Resolved]
  - Forced vital capacity decreased [Unknown]
  - Peak expiratory flow rate decreased [Unknown]
  - Pneumonia [Recovering/Resolving]
  - Lower respiratory tract infection [Unknown]
  - Respiration abnormal [Unknown]
  - Asthma [Unknown]
  - Obstructive airways disorder [Not Recovered/Not Resolved]
  - Carbon monoxide diffusing capacity decreased [Unknown]

NARRATIVE: CASE EVENT DATE: 20161216
